FAERS Safety Report 20368824 (Version 2)
Quarter: 2022Q2

REPORT INFORMATION
  Report Type: Report from Study
  Country: US (occurrence: US)
  Receive Date: 20220124
  Receipt Date: 20220418
  Transmission Date: 20220721
  Serious: No
  Sender: FDA-Public Use
  Company Number: US-NOVARTISTESTPH-NVSC2022US014102

PATIENT
  Sex: Female

DRUGS (1)
  1. COSENTYX [Suspect]
     Active Substance: SECUKINUMAB
     Indication: Psoriasis
     Dosage: 300 MG, QW ( LOAD EVERY WEEK 0, 1, 2, 3, 4 THEN EVERY 4 WEEKS THEREAFTER)
     Route: 058

REACTIONS (1)
  - Injection site rash [Recovered/Resolved]
